FAERS Safety Report 5402781-7 (Version None)
Quarter: 2007Q3

REPORT INFORMATION
  Report Type: 
  Country: None (occurrence: None)
  Receive Date: 20070730
  Receipt Date: 20070730
  Transmission Date: 20080115
  Serious: Yes (Hospitalization)
  Sender: FDA-Public Use
  Company Number: None

PATIENT
  Sex: Male
  Weight: 79.5 kg

DRUGS (4)
  1. INTRON A [Suspect]
     Dosage: 63 MILLIUNIT
     Dates: start: 20070622, end: 20070709
  2. CITALOPRAM HYDROBROMIDE [Concomitant]
  3. DILTIA XT [Concomitant]
  4. LISINOPRIL [Concomitant]

REACTIONS (18)
  - ASTHENIA [None]
  - BLOOD ALBUMIN DECREASED [None]
  - BLOOD CALCIUM DECREASED [None]
  - BLOOD GLUCOSE INCREASED [None]
  - BLOOD PRESSURE DECREASED [None]
  - BLOOD SODIUM DECREASED [None]
  - BUNDLE BRANCH BLOCK RIGHT [None]
  - DIARRHOEA [None]
  - DIZZINESS [None]
  - HYPOVOLAEMIA [None]
  - NAUSEA [None]
  - NEUTROPHIL PERCENTAGE INCREASED [None]
  - ORAL INTAKE REDUCED [None]
  - PLATELET COUNT DECREASED [None]
  - PROTEIN URINE PRESENT [None]
  - QRS AXIS ABNORMAL [None]
  - SYNCOPE [None]
  - VOMITING [None]
